FAERS Safety Report 5639572-8 (Version None)
Quarter: 2008Q1

REPORT INFORMATION
  Report Type: 
  Country: None (occurrence: None)
  Receive Date: 20080226
  Receipt Date: 20080215
  Transmission Date: 20080703
  Serious: Yes (Hospitalization, Other)
  Sender: FDA-Public Use
  Company Number: GB-ALLERGAN-0607609US

PATIENT
  Age: 32 Year
  Sex: Female

DRUGS (1)
  1. BOTOX [Suspect]
     Indication: SKIN WRINKLING
     Dosage: 16 UNITS, SINGLE
     Route: 030
     Dates: start: 20061031, end: 20061031

REACTIONS (27)
  - ABDOMINAL PAIN [None]
  - ARRHYTHMIA [None]
  - ASTHENIA [None]
  - CARDIOVASCULAR DISORDER [None]
  - CHEST PAIN [None]
  - DIARRHOEA [None]
  - DYSPNOEA [None]
  - FEELING HOT [None]
  - HALLUCINATION [None]
  - HYPERHIDROSIS [None]
  - HYPERTENSION [None]
  - MIGRAINE [None]
  - MUSCLE SPASMS [None]
  - MUSCULOSKELETAL STIFFNESS [None]
  - MYALGIA [None]
  - NAUSEA [None]
  - NEURALGIA [None]
  - NIGHTMARE [None]
  - OVERDOSE [None]
  - PALPITATIONS [None]
  - PANIC ATTACK [None]
  - RENAL PAIN [None]
  - SKIN TIGHTNESS [None]
  - TEARFULNESS [None]
  - VEIN DISORDER [None]
  - VISION BLURRED [None]
  - WEIGHT DECREASED [None]
